FAERS Safety Report 9426309 (Version 3)
Quarter: 2013Q3

REPORT INFORMATION
  Report Type: Report from Study
  Country: US (occurrence: US)
  Receive Date: 20130730
  Receipt Date: 20130919
  Transmission Date: 20140515
  Serious: Yes (Hospitalization, Other)
  Sender: FDA-Public Use
  Company Number: US-BRISTOL-MYERS SQUIBB COMPANY-19127984

PATIENT
  Age: 64 Year
  Sex: Male
  Weight: 84.69 kg

DRUGS (2)
  1. IPILIMUMAB [Suspect]
     Indication: NON-HODGKIN^S LYMPHOMA
     Dosage: 90 MINUTES Q3 WKS ON WEEKS 1,4,7,10. TOTAL DOSE 499.57 MG, LAST DOSE: (18-JUN-2013).
     Route: 042
     Dates: start: 20130528, end: 2013
  2. RITUXIMAB [Suspect]
     Indication: NON-HODGKIN^S LYMPHOMA
     Dosage: 3200MG?LAST DOSE: 18JUN13
     Route: 042
     Dates: start: 20130528

REACTIONS (2)
  - Anaemia [Not Recovered/Not Resolved]
  - Platelet count decreased [Not Recovered/Not Resolved]
